FAERS Safety Report 25987182 (Version 1)
Quarter: 2025Q4

REPORT INFORMATION
  Report Type: Spontaneous
  Country: EU (occurrence: EU)
  Receive Date: 20251103
  Receipt Date: 20251103
  Transmission Date: 20260117
  Serious: Yes (Hospitalization, Other)
  Sender: ALKEM
  Company Number: None

PATIENT
  Age: 35 Year
  Sex: Male
  Weight: 95 kg

DRUGS (2)
  1. IBUPROFEN [Suspect]
     Active Substance: IBUPROFEN
     Indication: Nasopharyngitis
     Dosage: UNK
     Route: 065
  2. ASPIRIN [Suspect]
     Active Substance: ASPIRIN
     Indication: Nasopharyngitis
     Dosage: UNK (ASS (ACETYLSALICYLIC ACID))
     Route: 065

REACTIONS (3)
  - Drug-induced liver injury [Unknown]
  - Jaundice [Unknown]
  - Transaminases increased [Unknown]

NARRATIVE: CASE EVENT DATE: 20250228
